FAERS Safety Report 8811549 (Version 2)
Quarter: 2012Q4

REPORT INFORMATION
  Report Type: 
  Country: US (occurrence: US)
  Receive Date: 20120927
  Receipt Date: 20121107
  Transmission Date: 20130627
  Serious: No
  Sender: FDA-Public Use
  Company Number: US-PFIZER INC-2012236412

PATIENT
  Sex: Female

DRUGS (1)
  1. ESTRING [Suspect]
     Dosage: 2 mg, UNK
     Route: 067
     Dates: start: 20120904, end: 20120905

REACTIONS (2)
  - Hypersensitivity [Unknown]
  - Vulvovaginal pain [Recovered/Resolved]
